FAERS Safety Report 9777938 (Version 2)
Quarter: 2013Q4

REPORT INFORMATION
  Report Type: Spontaneous
  Country: US (occurrence: US)
  Receive Date: 20131223
  Receipt Date: 20131226
  Transmission Date: 20140711
  Serious: No
  Sender: FDA-Public Use
  Company Number: US-009507513-1312USA009969

PATIENT
  Age: 65 Year
  Sex: Male

DRUGS (3)
  1. JANUMET [Suspect]
     Indication: TYPE 2 DIABETES MELLITUS
     Dosage: UNK, BID
     Route: 048
     Dates: start: 2011
  2. FLOMAX (MORNIFLUMATE) [Concomitant]
  3. PROSCAR [Concomitant]

REACTIONS (2)
  - Feeling cold [Unknown]
  - Irritability [Unknown]
